FAERS Safety Report 8906659 (Version 3)
Quarter: 2013Q1

REPORT INFORMATION
  Report Type: Report from Study
  Country: JP (occurrence: JP)
  Receive Date: 20121114
  Receipt Date: 20130305
  Transmission Date: 20140127
  Serious: Yes (Death)
  Sender: FDA-Public Use
  Company Number: JP-JNJFOC-20121104598

PATIENT
  Age: 46 None
  Sex: Male
  Weight: 55 kg

DRUGS (7)
  1. STELARA [Suspect]
     Indication: PSORIASIS
     Route: 058
     Dates: start: 20120816
  2. STELARA [Suspect]
     Indication: PSORIASIS
     Route: 058
     Dates: start: 20120913
  3. ALLELOCK [Concomitant]
     Indication: PSORIASIS
     Route: 048
  4. HOMOCLOMIN [Concomitant]
     Indication: PSORIASIS
     Route: 048
  5. DERMOVATE [Concomitant]
     Indication: PSORIASIS
     Route: 061
  6. OXAROL [Concomitant]
     Indication: PSORIASIS
     Route: 061
  7. FULMETA [Concomitant]
     Indication: PSORIASIS
     Route: 061

REACTIONS (2)
  - Completed suicide [Fatal]
  - Diarrhoea [Unknown]
